FAERS Safety Report 15084946 (Version 1)
Quarter: 2018Q2

REPORT INFORMATION
  Report Type: Report from Study
  Country: US (occurrence: US)
  Receive Date: 20180628
  Receipt Date: 20180628
  Transmission Date: 20180711
  Serious: Yes (Hospitalization)
  Sender: FDA-Public Use
  Company Number: US-BAYER-2018-105115

PATIENT
  Age: 70 Year
  Sex: Male

DRUGS (1)
  1. NEXAVAR [Suspect]
     Active Substance: SORAFENIB
     Indication: HEPATOCELLULAR CARCINOMA
     Dosage: 200 MG, BID
     Route: 048
     Dates: start: 20180530, end: 20180603

REACTIONS (12)
  - Hepatic failure [Not Recovered/Not Resolved]
  - Liver disorder [None]
  - Exercise tolerance decreased [None]
  - Dysgeusia [None]
  - Dyspnoea [None]
  - Myalgia [None]
  - Fatigue [Not Recovered/Not Resolved]
  - Off label use [None]
  - Ammonia increased [Recovered/Resolved]
  - Blood pressure increased [Recovered/Resolved]
  - Unevaluable event [Not Recovered/Not Resolved]
  - Confusional state [Recovered/Resolved]

NARRATIVE: CASE EVENT DATE: 201805
